FAERS Safety Report 9380255 (Version 1)
Quarter: 2013Q3

REPORT INFORMATION
  Report Type: Spontaneous
  Country: US (occurrence: None)
  Receive Date: 20130701
  Receipt Date: 20130701
  Transmission Date: 20140515
  Serious: Yes (Other)
  Sender: FDA-Public Use
  Company Number: None

PATIENT
  Age: 43 Year
  Sex: Female
  Weight: 108.2 kg

DRUGS (2)
  1. FENTANYL [Suspect]
     Dosage: 25 MCG IV
     Route: 042
  2. LIDOCAINE [Suspect]

REACTIONS (6)
  - Tachypnoea [None]
  - Pallor [None]
  - Hyperhidrosis [None]
  - Hypotension [None]
  - Bradycardia [None]
  - Malaise [None]
